FAERS Safety Report 6803955-0 (Version None)
Quarter: 2010Q2

REPORT INFORMATION
  Report Type: 
  Country: None (occurrence: None)
  Receive Date: 20100628
  Receipt Date: 20060516
  Transmission Date: 20101027
  Serious: Yes (Other)
  Sender: FDA-Public Use
  Company Number: US-PFIZER INC-2006040337

PATIENT
  Sex: Male
  Weight: 83.91 kg

DRUGS (10)
  1. SUTENT [Suspect]
     Indication: RENAL CELL CARCINOMA STAGE IV
     Route: 048
     Dates: start: 20060221
  2. SUTENT [Suspect]
     Dosage: DAILY
     Route: 048
     Dates: start: 20060401
  3. HYDROCHLOROTHIAZIDE [Concomitant]
     Indication: HYPERTENSION
     Route: 065
  4. VITAMINS [Concomitant]
     Route: 065
  5. MTV [Concomitant]
     Route: 048
  6. FISH OIL [Concomitant]
     Route: 048
  7. GARLIC [Concomitant]
     Route: 048
  8. VITAMIN C [Concomitant]
     Route: 048
  9. ALL OTHER NON-THERAPEUTIC PRODUCTS [Concomitant]
     Route: 065
  10. ALL OTHER THERAPEUTIC PRODUCTS [Concomitant]
     Route: 065

REACTIONS (10)
  - BLOOD PRESSURE INCREASED [None]
  - DISEASE PROGRESSION [None]
  - HYPERAESTHESIA [None]
  - LOCAL SWELLING [None]
  - MALAISE [None]
  - MYALGIA [None]
  - ORAL DYSAESTHESIA [None]
  - ORAL PAIN [None]
  - PAIN [None]
  - RENAL CELL CARCINOMA STAGE IV [None]
